FAERS Safety Report 7339012-7 (Version None)
Quarter: 2011Q1

REPORT INFORMATION
  Report Type: 
  Country: None (occurrence: None)
  Receive Date: 20110308
  Receipt Date: 20110307
  Transmission Date: 20110831
  Serious: Yes (Other)
  Sender: FDA-Public Use
  Company Number: US-PFIZER INC-2011049825

PATIENT
  Sex: Male
  Weight: 105.22 kg

DRUGS (5)
  1. CELEBREX [Suspect]
     Indication: PAIN
     Dosage: 200 MG, DAILY
     Route: 048
  2. AMLODIPINE [Concomitant]
     Dosage: 5 MG, UNK
  3. SIMVASTATIN [Concomitant]
     Dosage: 80 MG, UNK
  4. WARFARIN [Concomitant]
     Dosage: 5 MG, 2X/DAY
  5. HYDROCHLOROTHIAZIDE [Concomitant]
     Dosage: 20 MG, UNK

REACTIONS (4)
  - DYSKINESIA [None]
  - MEMORY IMPAIRMENT [None]
  - PAIN [None]
  - GASTROINTESTINAL DISORDER [None]
